FAERS Safety Report 22540850 (Version 1)
Quarter: 2023Q2

REPORT INFORMATION
  Report Type: Spontaneous
  Country: US (occurrence: US)
  Receive Date: 20230609
  Receipt Date: 20230609
  Transmission Date: 20230721
  Serious: No
  Sender: FDA-Public Use
  Company Number: US-002147023-NVSC2023US111610

PATIENT
  Sex: Female
  Weight: 83 kg

DRUGS (20)
  1. LEQVIO [Suspect]
     Active Substance: INCLISIRAN SODIUM
     Indication: Product used for unknown indication
     Dosage: 284 MG, IN A 1.5 ML SOLUTION, INITIAL, 3 MONTHS, Q6 MONTH THEREAFTER
     Route: 058
  2. REPATHA [Suspect]
     Active Substance: EVOLOCUMAB
     Indication: Product used for unknown indication
     Dosage: UNK
     Route: 065
     Dates: start: 20221116
  3. REPATHA [Suspect]
     Active Substance: EVOLOCUMAB
     Dosage: UNK
     Route: 065
     Dates: start: 20230216
  4. HYDRALAZINE HCL [Concomitant]
     Active Substance: HYDRALAZINE HYDROCHLORIDE
     Indication: Product used for unknown indication
     Dosage: 1 DOSAGE FORM, BID (WITH FOOD, 90 DAYS, 180 TABLETS, REFILL;3)
     Route: 065
     Dates: start: 20230604
  5. ZETIA [Concomitant]
     Active Substance: EZETIMIBE
     Indication: Product used for unknown indication
     Dosage: 1 DOSAGE FORM, QD (90 DAYS, 90 TABLETS, REFILLS:0)
     Route: 065
     Dates: start: 20230604
  6. AMLODIPINE BESYLATE [Concomitant]
     Active Substance: AMLODIPINE BESYLATE
     Indication: Product used for unknown indication
     Dosage: 1 DOSAGE FORM, QD (95, REFILL:3)
     Route: 065
     Dates: start: 20230604
  7. ASPIRIN [Concomitant]
     Active Substance: ASPIRIN
     Indication: Product used for unknown indication
     Dosage: 1 DOSAGE FORM, QD
     Route: 048
     Dates: start: 20230604
  8. BIOTIN [Concomitant]
     Active Substance: BIOTIN
     Indication: Product used for unknown indication
     Dosage: 1 DOSAGE FORM, QD
     Route: 048
     Dates: start: 20230604
  9. BUMETANIDE [Concomitant]
     Active Substance: BUMETANIDE
     Indication: Product used for unknown indication
     Dosage: 1 DOSAGE FORM (3-4 DAYS/WEEK)
     Route: 048
     Dates: start: 20230604
  10. CALCIUM [Concomitant]
     Active Substance: CALCIUM
     Indication: Product used for unknown indication
     Dosage: 1 DOSAGE FORM, QD (WITH MEALS)
     Route: 048
     Dates: start: 20230604
  11. COENZYME Q10 [Concomitant]
     Active Substance: DIETARY SUPPLEMENT\UBIDECARENONE
     Indication: Product used for unknown indication
     Dosage: 1 DOSAGE FORM, QD (WITH MEAL, 30 DAYS)
     Route: 048
     Dates: start: 20230604
  12. DICLOFENAC SODIUM [Concomitant]
     Active Substance: DICLOFENAC SODIUM
     Indication: Product used for unknown indication
     Dosage: UNK (1 % APPLY 2 GRAMS TO AFFECTED JOINTS TOPICAL BID PRN JOINT PAIN, 100 GRAM, REFILLS:3)
     Route: 065
     Dates: start: 20230604
  13. ESOMEPRAZOLE MAGNESIUM [Concomitant]
     Active Substance: ESOMEPRAZOLE MAGNESIUM
     Indication: Product used for unknown indication
     Dosage: 1 DOSAGE FORM, QD (95, REFILLS:3)
     Route: 048
     Dates: start: 20230604
  14. FLUOXETINE HYDROCHLORIDE [Concomitant]
     Active Substance: FLUOXETINE HYDROCHLORIDE
     Indication: Product used for unknown indication
     Dosage: UNK, QD (95, REFILLS:3)
     Route: 048
     Dates: start: 20230604
  15. LUTEIN [Concomitant]
     Active Substance: LUTEIN
     Indication: Product used for unknown indication
     Dosage: 1 DOSAGE FORM, QD (WITH MEAL, 30 DAY)
     Route: 048
     Dates: start: 20230604
  16. POTASSIUM CHLORIDE [Concomitant]
     Active Substance: POTASSIUM CHLORIDE
     Indication: Product used for unknown indication
     Dosage: UNK (ER 20 MEQ 1 TABLET ORALLY 3-4 DAYS/WEEK)
     Route: 065
     Dates: start: 20230604
  17. VALSARTAN [Concomitant]
     Active Substance: VALSARTAN
     Indication: Product used for unknown indication
     Dosage: 1 DOSAGE FORM, BID (190, REFILLS:3)
     Route: 065
     Dates: start: 20230604
  18. VICTOZA [Concomitant]
     Active Substance: LIRAGLUTIDE
     Indication: Product used for unknown indication
     Dosage: 1.8 MG, QD (10 PENS, REFILL:3)
     Route: 058
     Dates: start: 20230604
  19. VITAMIN C [Concomitant]
     Active Substance: ASCORBIC ACID
     Indication: Product used for unknown indication
     Dosage: 1 DOSAGE FORM, QD (30 DAYS)
     Route: 048
     Dates: start: 20230604
  20. ZYRTEC [Concomitant]
     Active Substance: CETIRIZINE HYDROCHLORIDE
     Indication: Product used for unknown indication
     Dosage: 1 DOSAGE FORM, QD (PRN ALLERGIES)
     Route: 048
     Dates: start: 20230604

REACTIONS (1)
  - Drug ineffective [Unknown]
